FAERS Safety Report 9483857 (Version 1)
Quarter: 2013Q3

REPORT INFORMATION
  Report Type: Report from Study
  Country: AR (occurrence: AR)
  Receive Date: 20130828
  Receipt Date: 20130828
  Transmission Date: 20140515
  Serious: Yes (Other)
  Sender: FDA-Public Use
  Company Number: PHHY2013AR092035

PATIENT
  Sex: Female

DRUGS (3)
  1. ONBREZ [Suspect]
     Indication: LUNG DISORDER
     Dosage: 1 DF, QD
     Route: 048
     Dates: start: 201305
  2. ONBREZ [Suspect]
     Indication: OFF LABEL USE
  3. LOTRIAL [Concomitant]
     Indication: HYPERTENSION
     Dosage: 5 MG, UNK
     Route: 048

REACTIONS (2)
  - Depression [Recovering/Resolving]
  - Weight decreased [Unknown]
